FAERS Safety Report 10041764 (Version 1)
Quarter: 2014Q1

REPORT INFORMATION
  Report Type: Spontaneous
  Country: RO (occurrence: RO)
  Receive Date: 20140327
  Receipt Date: 20140327
  Transmission Date: 20141002
  Serious: Yes (Life-Threatening, Other)
  Sender: FDA-Public Use
  Company Number: RO-ACTAVIS-2014-05475

PATIENT
  Age: 24 Year
  Sex: Female

DRUGS (9)
  1. DOXORUBICIN (UNKNOWN) [Suspect]
     Indication: HODGKIN^S DISEASE NODULAR SCLEROSIS STAGE II
     Dosage: UNK, 5 CYCLES
     Route: 065
  2. VINCRISTINE (UNKNOWN) [Suspect]
     Indication: HODGKIN^S DISEASE NODULAR SCLEROSIS STAGE II
     Dosage: UNK, 2 CYCLES
     Route: 065
  3. ETOPOSIDE (UNKNOWN) [Suspect]
     Indication: HODGKIN^S DISEASE NODULAR SCLEROSIS STAGE II
     Dosage: UNK, 2 CYCLES
     Route: 065
  4. CYCLOPHOSPHAMIDE (UNKNOWN) [Suspect]
     Indication: HODGKIN^S DISEASE NODULAR SCLEROSIS STAGE II
     Dosage: UNK, 2 CYCLES
     Route: 065
  5. BLEOMYCIN [Suspect]
     Indication: HODGKIN^S DISEASE NODULAR SCLEROSIS STAGE II
     Dosage: UNK, 5 CYCLES
     Route: 065
  6. VINBLASTINE [Suspect]
     Indication: HODGKIN^S DISEASE NODULAR SCLEROSIS STAGE II
     Dosage: UNK, 3 CYCLES
     Route: 065
  7. DACARBAZINE [Suspect]
     Indication: HODGKIN^S DISEASE NODULAR SCLEROSIS STAGE II
     Dosage: UNK, 3 CYCLES
     Route: 065
  8. PROCARBAZINE [Suspect]
     Indication: HODGKIN^S DISEASE NODULAR SCLEROSIS STAGE II
     Dosage: UNK, 2 CYCLES
     Route: 065
  9. PREDNISONE [Concomitant]
     Indication: HODGKIN^S DISEASE NODULAR SCLEROSIS STAGE II
     Dosage: UNK, 2 CYCLES
     Route: 065

REACTIONS (1)
  - B precursor type acute leukaemia [Recovered/Resolved]
